FAERS Safety Report 9018641 (Version 1)
Quarter: 2013Q1

REPORT INFORMATION
  Report Type: Spontaneous
  Country: DE (occurrence: DE)
  Receive Date: 20130118
  Receipt Date: 20130118
  Transmission Date: 20140127
  Serious: Yes (Hospitalization)
  Sender: FDA-Public Use
  Company Number: DE-PFIZER INC-2013020390

PATIENT
  Age: 34 Year
  Sex: Female

DRUGS (3)
  1. PANTOPRAZOLE [Suspect]
     Indication: HELICOBACTER INFECTION
     Dosage: UNK DF, SINGLE
     Route: 048
     Dates: start: 20121005, end: 20121005
  2. CLARITHROMYCIN [Suspect]
     Indication: HELICOBACTER INFECTION
     Dosage: UNK (1 DOSAGE FORMS)
     Route: 048
     Dates: start: 20121005, end: 20121005
  3. AMOXICILLIN [Suspect]
     Indication: HELICOBACTER INFECTION
     Dosage: UNK (1 DOSAGE FORM)
     Route: 048
     Dates: start: 20121005, end: 20121005

REACTIONS (9)
  - Malaise [Recovered/Resolved]
  - Flushing [Recovered/Resolved]
  - Anaphylactic reaction [Recovered/Resolved]
  - Angioedema [Recovered/Resolved]
  - Pruritus [Recovered/Resolved]
  - Rash maculo-papular [Recovered/Resolved]
  - Urticaria [Recovered/Resolved]
  - Diarrhoea [Recovered/Resolved]
  - Nausea [Recovered/Resolved]
